FAERS Safety Report 4665849-9 (Version None)
Quarter: 2005Q2

REPORT INFORMATION
  Report Type: 
  Country: None (occurrence: None)
  Receive Date: 20050519
  Receipt Date: 20050414
  Transmission Date: 20051028
  Serious: No
  Sender: FDA-Public Use
  Company Number: US-GLAXOSMITHKLINE-A0554313A

PATIENT
  Age: 70 Year
  Sex: Male
  Weight: 86.4 kg

DRUGS (2)
  1. AVODART [Suspect]
     Indication: BENIGN PROSTATIC HYPERPLASIA
     Dosage: .5MG UNKNOWN
     Route: 048
     Dates: start: 20050201, end: 20050401
  2. TOPROL-XL [Concomitant]
     Indication: TACHYCARDIA
     Dosage: 50MG UNKNOWN
     Route: 048
     Dates: start: 20041101

REACTIONS (1)
  - CONTUSION [None]
